FAERS Safety Report 20785059 (Version 6)
Quarter: 2022Q4

REPORT INFORMATION
  Report Type: Spontaneous
  Country: CA (occurrence: CA)
  Receive Date: 20220504
  Receipt Date: 20221010
  Transmission Date: 20230113
  Serious: Yes (Hospitalization, Other)
  Sender: FDA-Public Use
  Company Number: CA-GILEAD-2022-0578270

PATIENT
  Age: 87 Year
  Sex: Female

DRUGS (1)
  1. ZYDELIG [Suspect]
     Active Substance: IDELALISIB
     Indication: Chronic lymphocytic leukaemia
     Dosage: 150 MG, BID
     Route: 048
     Dates: start: 202201, end: 20220414

REACTIONS (3)
  - Hepatic lesion [Unknown]
  - Diarrhoea [Unknown]
  - Liver function test increased [Unknown]

NARRATIVE: CASE EVENT DATE: 20220414
